FAERS Safety Report 20837763 (Version 3)
Quarter: 2022Q4

REPORT INFORMATION
  Report Type: Other
  Country: US (occurrence: None)
  Receive Date: 20220517
  Receipt Date: 20221121
  Transmission Date: 20230112
  Serious: Yes (Hospitalization, Other)
  Sender: FDA-Public Use
  Company Number: US-ROCHE-2537011

PATIENT
  Age: 92 Year
  Sex: Female
  Weight: 60.927 kg

DRUGS (28)
  1. CLONAZEPAM [Suspect]
     Active Substance: CLONAZEPAM
     Indication: Product used for unknown indication
     Route: 048
  2. ACTEMRA [Suspect]
     Active Substance: TOCILIZUMAB
     Indication: Giant cell arteritis
     Dosage: 0.9 ML,
     Route: 058
     Dates: start: 201912
  3. ACTEMRA [Suspect]
     Active Substance: TOCILIZUMAB
     Indication: Polymyalgia rheumatica
  4. XOLAIR [Suspect]
     Active Substance: OMALIZUMAB
     Indication: Asthma
     Route: 058
     Dates: start: 2003
  5. XOLAIR [Suspect]
     Active Substance: OMALIZUMAB
     Indication: Asthma
     Route: 058
  6. XOLAIR [Suspect]
     Active Substance: OMALIZUMAB
     Indication: Giant cell arteritis
     Dosage: THREE INJECTIONS EVERY TWO WEEKS, ONGOING YES
     Route: 058
  7. XOLAIR [Suspect]
     Active Substance: OMALIZUMAB
     Indication: Polymyalgia rheumatica
     Dosage: INJECT 150MG SUBCUTANEOUSLY EVERY 14 DAY(S)
     Route: 058
  8. XOLAIR [Suspect]
     Active Substance: OMALIZUMAB
     Indication: Asthma
     Dosage: INJECT 3 VIALS EVERY 2 WEEKS
     Route: 058
  9. METOPROLOL [Concomitant]
     Active Substance: METOPROLOL
  10. SYNTHROID [Concomitant]
     Active Substance: LEVOTHYROXINE SODIUM
     Route: 048
  11. LUTEIN [Concomitant]
     Active Substance: LUTEIN
     Route: 048
  12. MEMANTINE [Concomitant]
     Active Substance: MEMANTINE
  13. MONTELUKAST [Concomitant]
     Active Substance: MONTELUKAST SODIUM
  14. ACETAMINOPHEN\HYDROCODONE [Concomitant]
     Active Substance: ACETAMINOPHEN\HYDROCODONE
     Dosage: 10-325, 1 TO 2 EVERY 4 TO 6 HOURS TAKES EVERY DAY
     Route: 048
  15. BRIMONIDINE TARTRATE [Concomitant]
     Active Substance: BRIMONIDINE TARTRATE
     Indication: Macular degeneration
  16. PREDNISONE [Concomitant]
     Active Substance: PREDNISONE
     Indication: Giant cell arteritis
     Route: 048
     Dates: start: 201911
  17. PREDNISONE [Concomitant]
     Active Substance: PREDNISONE
     Route: 048
  18. PREDNISONE [Concomitant]
     Active Substance: PREDNISONE
     Route: 048
     Dates: start: 20200214, end: 20200304
  19. PREDNISONE [Concomitant]
     Active Substance: PREDNISONE
     Route: 048
     Dates: start: 20200304
  20. MINERALS\VITAMINS [Concomitant]
     Active Substance: MINERALS\VITAMINS
  21. NAMENDA XR [Concomitant]
     Active Substance: MEMANTINE HYDROCHLORIDE
     Route: 048
  22. FENTANYL [Concomitant]
     Active Substance: FENTANYL
  23. SYNTHROID [Concomitant]
     Active Substance: LEVOTHYROXINE SODIUM
     Route: 048
  24. LATANOPROST [Concomitant]
     Active Substance: LATANOPROST
     Route: 047
  25. PREVIDENT 5000 BOOSTER [Concomitant]
     Active Substance: SODIUM FLUORIDE
  26. PROAIR HFA [Concomitant]
     Active Substance: ALBUTEROL SULFATE
  27. VENTOLIN [Concomitant]
     Active Substance: ALBUTEROL SULFATE
  28. ADVAIR HFA [Concomitant]
     Active Substance: FLUTICASONE PROPIONATE\SALMETEROL XINAFOATE

REACTIONS (31)
  - Deafness [Unknown]
  - Bronchitis [Unknown]
  - Vocal cord paralysis [Unknown]
  - Neuropathy peripheral [Not Recovered/Not Resolved]
  - Blindness [Unknown]
  - Hypoacusis [Unknown]
  - Illness [Not Recovered/Not Resolved]
  - Macular degeneration [Not Recovered/Not Resolved]
  - Glaucoma [Not Recovered/Not Resolved]
  - Auditory disorder [Not Recovered/Not Resolved]
  - Giant cell arteritis [Not Recovered/Not Resolved]
  - Nasopharyngitis [Recovered/Resolved]
  - Dysphonia [Not Recovered/Not Resolved]
  - Body height decreased [Not Recovered/Not Resolved]
  - Lower respiratory tract infection [Unknown]
  - Rhinorrhoea [Not Recovered/Not Resolved]
  - Hearing aid user [Unknown]
  - Product quality issue [Unknown]
  - Alopecia [Unknown]
  - Rash [Unknown]
  - Skin exfoliation [Unknown]
  - Migraine [Unknown]
  - Asthma [Unknown]
  - Weight increased [Unknown]
  - Productive cough [Unknown]
  - Dry eye [Unknown]
  - Nocturia [Unknown]
  - Depressed mood [Unknown]
  - Vision blurred [Unknown]
  - Off label use [Unknown]
  - Off label use [Unknown]

NARRATIVE: CASE EVENT DATE: 20130101
